FAERS Safety Report 7573100-5 (Version None)
Quarter: 2011Q2

REPORT INFORMATION
  Report Type: 
  Country: None (occurrence: None)
  Receive Date: 20110627
  Receipt Date: 20110613
  Transmission Date: 20111010
  Serious: Yes (Hospitalization)
  Sender: FDA-Public Use
  Company Number: JP-MYLANLABS-2011S1012440

PATIENT
  Age: 85 Year
  Sex: Male

DRUGS (5)
  1. FLUNITRAZEPAM [Suspect]
     Indication: PSYCHIATRIC SYMPTOM
     Route: 042
  2. HALOPERIDOL [Suspect]
     Indication: PSYCHIATRIC SYMPTOM
     Route: 042
  3. MIANSERIN [Concomitant]
     Dosage: 10MG DAILY
     Route: 065
  4. FLUNITRAZEPAM [Suspect]
     Dosage: 1MG DAILY
     Route: 048
  5. OLANZAPINE [Concomitant]
     Indication: PSYCHIATRIC SYMPTOM
     Route: 048

REACTIONS (4)
  - DYSARTHRIA [None]
  - DYSPHAGIA [None]
  - SOMNOLENCE [None]
  - URINARY RETENTION [None]
